FAERS Safety Report 17184382 (Version 3)
Quarter: 2020Q1

REPORT INFORMATION
  Report Type: Spontaneous
  Country: US (occurrence: US)
  Receive Date: 20191220
  Receipt Date: 20200325
  Transmission Date: 20200409
  Serious: No
  Sender: FDA-Public Use
  Company Number: US-TEVA-2019-US-1154768

PATIENT
  Age: 30 Year
  Sex: Female

DRUGS (9)
  1. CHOLESTEROL PILLS [Concomitant]
  2. BIOTIN [Concomitant]
     Active Substance: BIOTIN
  3. PROZAC [Concomitant]
     Active Substance: FLUOXETINE HYDROCHLORIDE
  4. BERGAMET PRO + W/CITRUS BERGAMIA RISSO PLANT [Concomitant]
  5. APRI [Suspect]
     Active Substance: DESOGESTREL\ETHINYL ESTRADIOL
     Indication: PROPHYLACTIC CHEMOTHERAPY
     Dosage: DOSE: 0.15-0.03MG
     Route: 065
     Dates: start: 201511, end: 201909
  6. VITAMIN C [Concomitant]
     Active Substance: ASCORBIC ACID
  7. CAMRESE [Concomitant]
     Active Substance: ETHINYL ESTRADIOL\LEVONORGESTREL
  8. MULTIVITAMINS [Concomitant]
     Active Substance: VITAMINS
  9. LUVOX [Suspect]
     Active Substance: FLUVOXAMINE MALEATE
     Route: 065

REACTIONS (2)
  - Weight increased [Not Recovered/Not Resolved]
  - Oestradiol increased [Unknown]

NARRATIVE: CASE EVENT DATE: 201910
